FAERS Safety Report 9600896 (Version 2)
Quarter: 2013Q4

REPORT INFORMATION
  Report Type: Spontaneous
  Country: US (occurrence: US)
  Receive Date: 20131004
  Receipt Date: 20131004
  Transmission Date: 20140711
  Serious: No
  Sender: FDA-Public Use
  Company Number: US-AMGEN-USASP2013036266

PATIENT
  Age: 27 Year
  Sex: Male
  Weight: 86.17 kg

DRUGS (4)
  1. ENBREL [Suspect]
     Indication: PSORIASIS
     Dosage: 50 MG, QWK
     Route: 058
     Dates: start: 20110622, end: 20130509
  2. HUMIRA [Concomitant]
     Indication: PSORIASIS
     Dosage: 40 MG, QWK
     Route: 058
     Dates: start: 20130516
  3. MULTIVITAMINS, PLAIN [Concomitant]
     Dosage: UNK
  4. PROTEIN [Concomitant]
     Dosage: 80 %, UNK

REACTIONS (1)
  - Drug effect decreased [Recovered/Resolved]
